FAERS Safety Report 24007090 (Version 1)
Quarter: 2024Q2

REPORT INFORMATION
  Report Type: Spontaneous
  Country: US (occurrence: US)
  Receive Date: 20240624
  Receipt Date: 20240624
  Transmission Date: 20240716
  Serious: No
  Sender: FDA-Public Use
  Company Number: US-009507513-2406USA006850

PATIENT

DRUGS (2)
  1. EMEND [Suspect]
     Active Substance: APREPITANT
     Indication: Cyclic vomiting syndrome
     Route: 048
  2. EMEND [Suspect]
     Active Substance: APREPITANT
     Indication: Cannabinoid hyperemesis syndrome

REACTIONS (2)
  - Rash [Unknown]
  - Product use in unapproved indication [Unknown]
